FAERS Safety Report 5621615-9 (Version None)
Quarter: 2008Q1

REPORT INFORMATION
  Report Type: 
  Country: None (occurrence: None)
  Receive Date: 20080211
  Receipt Date: 20080207
  Transmission Date: 20080703
  Serious: Yes (Death, Other)
  Sender: FDA-Public Use
  Company Number: PHHY2008JP00939

PATIENT
  Age: 73 Year
  Sex: Female
  Weight: 47 kg

DRUGS (11)
  1. ZOMETA [Suspect]
     Indication: METASTASIS
     Dosage: 4MG / DAY
     Route: 041
     Dates: start: 20070511, end: 20070511
  2. ZOMETA [Suspect]
     Dosage: 4 MG/ DAY
     Route: 041
     Dates: start: 20070605, end: 20070605
  3. ZOMETA [Suspect]
     Dosage: 4MG/ DAY
     Route: 041
     Dates: start: 20070703, end: 20070703
  4. ZOMETA [Suspect]
     Dosage: 4 MG/ DAY
     Route: 041
     Dates: start: 20070928, end: 20070928
  5. ZOMETA [Suspect]
     Dosage: 4 MG/ DAY
     Route: 041
     Dates: start: 20071106, end: 20071106
  6. ZOMETA [Suspect]
     Dosage: 4 MG/ DAY
     Route: 041
     Dates: start: 20071204, end: 20071204
  7. IRESSA [Concomitant]
     Indication: LUNG NEOPLASM MALIGNANT
     Dosage: 250 MG /DAY
     Route: 048
     Dates: start: 20071129, end: 20080112
  8. NORVASC [Concomitant]
     Indication: HYPERTENSION
     Dosage: 5 MG/ DAY
     Route: 048
     Dates: start: 20040101
  9. CARBOPLATIN [Concomitant]
     Route: 048
     Dates: start: 20070501
  10. TAXOL [Concomitant]
     Route: 048
     Dates: start: 20070501
  11. LENDORMIN [Concomitant]
     Dosage: 0.25 MG /DAY
     Route: 048

REACTIONS (12)
  - ANURIA [None]
  - BLOOD CREATININE INCREASED [None]
  - BLOOD UREA INCREASED [None]
  - DEHYDRATION [None]
  - DIARRHOEA [None]
  - DIZZINESS [None]
  - EATING DISORDER [None]
  - HEADACHE [None]
  - MENINGITIS [None]
  - NAUSEA [None]
  - RENAL FAILURE ACUTE [None]
  - VOMITING [None]
